FAERS Safety Report 24357297 (Version 2)
Quarter: 2025Q1

REPORT INFORMATION
  Report Type: Other
  Country: CA (occurrence: CA)
  Receive Date: 20240924
  Receipt Date: 20250203
  Transmission Date: 20250409
  Serious: Yes (Death, Other)
  Sender: APOTEX
  Company Number: CA-APOTEX-2024AP010576

PATIENT
  Sex: Female

DRUGS (2)
  1. FULVESTRANT [Suspect]
     Active Substance: FULVESTRANT
     Indication: Product used for unknown indication
     Route: 030
  2. AFINITOR [Suspect]
     Active Substance: EVEROLIMUS
     Indication: Product used for unknown indication
     Route: 065

REACTIONS (1)
  - Death [Fatal]
